FAERS Safety Report 23360106 (Version 1)
Quarter: 2024Q1

REPORT INFORMATION
  Report Type: Spontaneous
  Country: US (occurrence: US)
  Receive Date: 20240103
  Receipt Date: 20240103
  Transmission Date: 20240409
  Serious: Yes (Hospitalization, Other)
  Sender: FDA-Public Use
  Company Number: US-UNITED THERAPEUTICS-UNT-2023-037146

PATIENT
  Age: 59 Year
  Sex: Male

DRUGS (7)
  1. REMODULIN [Suspect]
     Active Substance: TREPROSTINIL
     Indication: Pulmonary hypertension
     Dosage: 0.004 ?G/KG, CONTINUING
     Route: 058
  2. REMODULIN [Suspect]
     Active Substance: TREPROSTINIL
     Dosage: UNK, CONTINUING
     Route: 058
  3. MILRINONE LACTATE [Concomitant]
     Active Substance: MILRINONE LACTATE
     Indication: Product used for unknown indication
     Dosage: 0.2 MCG/KG/MIN
     Route: 065
  4. EPOPROSTENOL [Concomitant]
     Active Substance: EPOPROSTENOL
     Indication: Product used for unknown indication
     Dosage: 1 MG, Q6H
     Route: 065
  5. SILDENAFIL [Concomitant]
     Active Substance: SILDENAFIL
     Indication: Pulmonary hypertension
     Dosage: 10 MG (MORNING AND AFTERNOON) AND 15 MG (IN EVENING)
     Route: 065
  6. SILDENAFIL [Concomitant]
     Active Substance: SILDENAFIL
     Dosage: 40 MG, TID
     Route: 065
  7. AMBRISENTAN [Concomitant]
     Active Substance: AMBRISENTAN
     Indication: Pulmonary hypertension
     Dosage: 10 MG, QD
     Route: 065

REACTIONS (3)
  - Cardiogenic shock [Unknown]
  - Acute kidney injury [Unknown]
  - Pulmonary hypertension [Not Recovered/Not Resolved]
